FAERS Safety Report 9205945 (Version 2)
Quarter: 2013Q2

REPORT INFORMATION
  Report Type: Spontaneous
  Country: US (occurrence: US)
  Receive Date: 20130403
  Receipt Date: 20130531
  Transmission Date: 20140414
  Serious: Yes (Other)
  Sender: FDA-Public Use
  Company Number: US-BAYER-2013-038130

PATIENT
  Age: 58 Year
  Sex: Female

DRUGS (4)
  1. CLIMARA PRO [Suspect]
     Indication: HOT FLUSH
     Dosage: UNK
     Route: 062
     Dates: start: 20130308, end: 20130310
  2. CLIMARA PRO [Suspect]
     Indication: HOT FLUSH
     Dosage: UNK
     Route: 062
     Dates: start: 20130317, end: 20130322
  3. CLIMARA PRO [Suspect]
     Indication: HOT FLUSH
     Dosage: UNK
     Dates: start: 20130508
  4. CLIMARA PRO [Suspect]
     Indication: HOT FLUSH
     Dosage: UNK
     Dates: start: 20130522, end: 20130528

REACTIONS (10)
  - Cystitis [Recovered/Resolved]
  - Abdominal distension [None]
  - Vaginal haemorrhage [None]
  - Vaginal haemorrhage [None]
  - Abdominal pain lower [None]
  - Back pain [None]
  - Product adhesion issue [None]
  - Incorrect drug administration duration [None]
  - Incorrect drug administration duration [None]
  - Vaginal haemorrhage [None]
